FAERS Safety Report 8291188-3 (Version None)
Quarter: 2012Q2

REPORT INFORMATION
  Report Type: 
  Country: None (occurrence: None)
  Receive Date: 20120417
  Receipt Date: 20120416
  Transmission Date: 20120825
  Serious: Yes (Congenital Anomaly, Other)
  Sender: FDA-Public Use
  Company Number: US-TEVA-325034USA

PATIENT

DRUGS (2)
  1. LAMOTRGINE [Suspect]
     Dosage: 50MG AT LAST MENSTRUAL PERIOD
  2. CARBAMAZEPINE [Suspect]
     Route: 064

REACTIONS (3)
  - OESOPHAGEAL ATRESIA [None]
  - RENAL APLASIA [None]
  - RIGHT AORTIC ARCH [None]
